FAERS Safety Report 16471519 (Version 2)
Quarter: 2019Q3

REPORT INFORMATION
  Report Type: Spontaneous
  Country: SE (occurrence: SE)
  Receive Date: 20190624
  Receipt Date: 20190703
  Transmission Date: 20191004
  Serious: Yes (Hospitalization, Other)
  Sender: FDA-Public Use
  Company Number: SE-B.I. PHARMACEUTICALS,INC./RIDGEFIELD-2017-BI-054784

PATIENT
  Age: 50 Year
  Sex: Female

DRUGS (28)
  1. SIFROL [Suspect]
     Active Substance: PRAMIPEXOLE
     Indication: RESTLESS LEGS SYNDROME
     Route: 065
     Dates: start: 200401
  2. KETOGAN [Concomitant]
     Indication: PAIN
     Route: 065
  3. NEUROBION [Concomitant]
     Active Substance: CYANOCOBALAMIN\PYRIDOXINE\THIAMINE
     Indication: PRODUCT USED FOR UNKNOWN INDICATION
     Route: 065
  4. NAROP [Concomitant]
     Active Substance: ROPIVACAINE HYDROCHLORIDE
     Route: 065
     Dates: start: 20051202
  5. GAMMAGLOBULIN [Concomitant]
     Active Substance: HUMAN IMMUNOGLOBULIN G
     Indication: PRODUCT USED FOR UNKNOWN INDICATION
     Route: 065
  6. PREDNISOLON [Concomitant]
     Active Substance: PREDNISOLONE
     Indication: SYSTEMIC LUPUS ERYTHEMATOSUS
     Route: 065
     Dates: start: 2002
  7. XEFO [Concomitant]
     Active Substance: LORNOXICAM
     Indication: PRODUCT USED FOR UNKNOWN INDICATION
     Route: 065
  8. ARTROX [Concomitant]
     Active Substance: GLUCOSAMINE
     Indication: PRODUCT USED FOR UNKNOWN INDICATION
     Route: 065
  9. NAROP [Concomitant]
     Active Substance: ROPIVACAINE HYDROCHLORIDE
     Route: 065
     Dates: start: 20050831
  10. KALCIPOS-D [Concomitant]
     Active Substance: CALCIUM CARBONATE\CHOLECALCIFEROL
     Indication: PRODUCT USED FOR UNKNOWN INDICATION
     Route: 065
  11. WARAN [Concomitant]
     Active Substance: WARFARIN SODIUM
     Indication: PRODUCT USED FOR UNKNOWN INDICATION
     Route: 065
  12. SIFROL [Suspect]
     Active Substance: PRAMIPEXOLE
     Route: 065
     Dates: start: 200402
  13. TRADOLAN [Concomitant]
     Active Substance: TRAMADOL
     Indication: PAIN
     Route: 065
  14. ALVEDON [Concomitant]
     Active Substance: ACETAMINOPHEN
     Indication: PRODUCT USED FOR UNKNOWN INDICATION
     Route: 065
  15. CIPRAMIL [Concomitant]
     Indication: DEPRESSION
     Route: 065
  16. GABAPENTIN. [Concomitant]
     Active Substance: GABAPENTIN
     Indication: PRODUCT USED FOR UNKNOWN INDICATION
     Route: 065
  17. VALDOXAN [Concomitant]
     Active Substance: AGOMELATINE
     Indication: PRODUCT USED FOR UNKNOWN INDICATION
     Route: 065
  18. PREDNISOLON [Concomitant]
     Active Substance: PREDNISOLONE
     Route: 065
  19. STESOLID [Concomitant]
     Active Substance: DIAZEPAM
     Indication: MUSCLE SPASMS
     Route: 065
     Dates: start: 2005
  20. PROPAVAN [Concomitant]
     Active Substance: PROPIOMAZINE
     Indication: PRODUCT USED FOR UNKNOWN INDICATION
     Route: 065
  21. BRICANYL [Concomitant]
     Active Substance: TERBUTALINE SULFATE
     Indication: PRODUCT USED FOR UNKNOWN INDICATION
     Route: 065
  22. SOMADRIL [Concomitant]
     Indication: PRODUCT USED FOR UNKNOWN INDICATION
     Route: 065
  23. NAROP [Concomitant]
     Active Substance: ROPIVACAINE HYDROCHLORIDE
     Dosage: 2MG/ML, 10 ML
     Route: 065
     Dates: start: 20050927
  24. NAROP [Concomitant]
     Active Substance: ROPIVACAINE HYDROCHLORIDE
     Route: 065
     Dates: start: 20051111
  25. NAROP [Concomitant]
     Active Substance: ROPIVACAINE HYDROCHLORIDE
     Indication: PRODUCT USED FOR UNKNOWN INDICATION
     Route: 065
     Dates: start: 20050811
  26. SIFROL [Suspect]
     Active Substance: PRAMIPEXOLE
     Route: 065
     Dates: start: 200605, end: 201011
  27. NEURONTIN [Concomitant]
     Active Substance: GABAPENTIN
     Indication: PRODUCT USED FOR UNKNOWN INDICATION
     Route: 065
  28. IMOVANE [Concomitant]
     Active Substance: ZOPICLONE
     Indication: PRODUCT USED FOR UNKNOWN INDICATION
     Route: 065

REACTIONS (30)
  - Depression [Recovered/Resolved]
  - Chest pain [Unknown]
  - Syncope [Unknown]
  - Hallucination, auditory [Unknown]
  - Suicidal ideation [Unknown]
  - Hormone level abnormal [Unknown]
  - Mental disorder [Unknown]
  - Oedema peripheral [Unknown]
  - Hallucination, visual [Unknown]
  - Feeling abnormal [Unknown]
  - Sudden onset of sleep [Unknown]
  - Renal cyst [Unknown]
  - Stress [Unknown]
  - Pyrexia [Unknown]
  - Dry mouth [Unknown]
  - Product use in unapproved indication [Unknown]
  - Gambling disorder [Unknown]
  - Aggression [Unknown]
  - Personality change [Unknown]
  - Malaise [Unknown]
  - Fluid retention [Unknown]
  - Overdose [Unknown]
  - Skin lesion [Unknown]
  - Depression [Unknown]
  - Cataract [Unknown]
  - Depression [Recovered/Resolved]
  - Cardiac failure [Unknown]
  - Impulsive behaviour [Unknown]
  - Vomiting [Unknown]
  - Mania [Unknown]

NARRATIVE: CASE EVENT DATE: 200403
